FAERS Safety Report 4409469-X (Version None)
Quarter: 2004Q3

REPORT INFORMATION
  Report Type: 
  Country: None (occurrence: None)
  Receive Date: 20040723
  Receipt Date: 20040712
  Transmission Date: 20050211
  Serious: Yes (Hospitalization, Other)
  Sender: FDA-Public Use
  Company Number: 2004041466

PATIENT
  Age: 17 Year
  Sex: Male

DRUGS (3)
  1. GEODON [Suspect]
     Indication: PSYCHOTIC DISORDER
     Dosage: 80 MG(40 MG, 2 IN 1 D), ORAL
     Route: 048
     Dates: start: 20040101
  2. GEODON [Suspect]
     Indication: SCHIZOAFFECTIVE DISORDER
     Dosage: 80 MG(40 MG, 2 IN 1 D), ORAL
     Route: 048
     Dates: start: 20040101
  3. LORAZEPAM [Suspect]
     Indication: NEUROLEPTIC MALIGNANT SYNDROME
     Dosage: 2 MG (0.5 MG, 4 IN 1D), ORAL
     Route: 048
     Dates: start: 20040101

REACTIONS (7)
  - BLOOD CREATINE PHOSPHOKINASE INCREASED [None]
  - FLUID INTAKE REDUCED [None]
  - GENERAL PHYSICAL HEALTH DETERIORATION [None]
  - MARKEDLY REDUCED DIETARY INTAKE [None]
  - MUSCULOSKELETAL STIFFNESS [None]
  - NEUROLEPTIC MALIGNANT SYNDROME [None]
  - WEIGHT DECREASED [None]
